FAERS Safety Report 15293220 (Version 1)
Quarter: 2018Q3

REPORT INFORMATION
  Report Type: Report from Study
  Country: US (occurrence: US)
  Receive Date: 20180820
  Receipt Date: 20180820
  Transmission Date: 20181010
  Serious: Yes (Other)
  Sender: FDA-Public Use
  Company Number: US-ROCHE-1204304

PATIENT

DRUGS (4)
  1. TRASTUZUMAB. [Suspect]
     Active Substance: TRASTUZUMAB
     Indication: HER-2 POSITIVE BREAST CANCER
     Route: 065
  2. BEZ235 (PI3K/MTOR INHIBITOR) [Suspect]
     Active Substance: DACTOLISIB
     Indication: HER-2 POSITIVE BREAST CANCER
     Dosage: CAPSULE FORM
     Route: 048
  3. BEZ235 (PI3K/MTOR INHIBITOR) [Suspect]
     Active Substance: DACTOLISIB
     Dosage: SACHET FORM
     Route: 048
  4. BEZ235 (PI3K/MTOR INHIBITOR) [Suspect]
     Active Substance: DACTOLISIB
     Dosage: SACHET FORM
     Route: 048

REACTIONS (8)
  - Diarrhoea [Unknown]
  - Aspartate aminotransferase increased [Unknown]
  - Anaemia [Unknown]
  - Fatigue [Unknown]
  - Rash [Unknown]
  - Alanine aminotransferase increased [Unknown]
  - Nausea [Unknown]
  - Asthenia [Unknown]
